FAERS Safety Report 10748127 (Version 1)
Quarter: 2015Q1

REPORT INFORMATION
  Report Type: Spontaneous
  Country: US (occurrence: None)
  Receive Date: 20150128
  Receipt Date: 20150128
  Transmission Date: 20150721
  Serious: Yes (Life-Threatening)
  Sender: FDA-Public Use
  Company Number: None

PATIENT
  Age: 67 Year
  Sex: Male
  Weight: 74.8 kg

DRUGS (1)
  1. HYDROMORPHONE [Suspect]
     Active Substance: HYDROMORPHONE
     Indication: PAIN
     Dosage: 2 MG OTHER IV
     Route: 042
     Dates: start: 20150105, end: 20150106

REACTIONS (6)
  - Loss of consciousness [None]
  - Pulse absent [None]
  - Abnormal faeces [None]
  - Hyperhidrosis [None]
  - Blood glucose increased [None]
  - Respiratory depression [None]

NARRATIVE: CASE EVENT DATE: 20150106
